FAERS Safety Report 14640976 (Version 1)
Quarter: 2018Q1

REPORT INFORMATION
  Report Type: Spontaneous
  Country: US (occurrence: US)
  Receive Date: 20180314
  Receipt Date: 20180314
  Transmission Date: 20180509
  Serious: No
  Sender: FDA-Public Use
  Company Number: None

PATIENT
  Age: 54 Year
  Sex: Male
  Weight: 133.2 kg

DRUGS (1)
  1. CHLORHEXIDIN [Suspect]
     Active Substance: CHLORHEXIDINE
     Indication: BLOOD DONOR
     Dosage: ?          OTHER FREQUENCY:ONCE;?
     Route: 061
     Dates: start: 20180310, end: 20180310

REACTIONS (1)
  - Injection site rash [None]

NARRATIVE: CASE EVENT DATE: 20180310
